FAERS Safety Report 6878084-0 (Version None)
Quarter: 2010Q2

REPORT INFORMATION
  Report Type: 
  Country: None (occurrence: None)
  Receive Date: 20100616
  Receipt Date: 20100305
  Transmission Date: 20101027
  Serious: No
  Sender: FDA-Public Use
  Company Number: DSA_42295_2010

PATIENT
  Sex: Female

DRUGS (11)
  1. XENAZINE [Suspect]
     Indication: HUNTINGTON'S CHOREA
     Dosage: (12.5 MG TWO TABLETS IN THE MORNING AND ONE TABLET IN THE EVENING ORAL), (12.5 MG TID ORAL), (25 MG
     Route: 048
     Dates: start: 20091221
  2. XENAZINE [Suspect]
     Indication: HUNTINGTON'S CHOREA
     Dosage: (12.5 MG TWO TABLETS IN THE MORNING AND ONE TABLET IN THE EVENING ORAL), (12.5 MG TID ORAL), (25 MG
     Route: 048
     Dates: start: 20100105
  3. XENAZINE [Suspect]
     Indication: HUNTINGTON'S CHOREA
     Dosage: (12.5 MG TWO TABLETS IN THE MORNING AND ONE TABLET IN THE EVENING ORAL), (12.5 MG TID ORAL), (25 MG
     Route: 048
     Dates: start: 20100201
  4. GLIPIZIDE [Concomitant]
  5. METFORMIN HCL [Concomitant]
  6. LEXAPRO [Concomitant]
  7. PEPCID [Concomitant]
  8. ASPIRIN [Concomitant]
  9. FERREX [Concomitant]
  10. MULTIPLE VITAMINS [Concomitant]
  11. FAMOTIDINE [Concomitant]

REACTIONS (5)
  - CONSTIPATION [None]
  - HAEMATOCHEZIA [None]
  - HAEMORRHOIDS [None]
  - SOMNOLENCE [None]
  - TREMOR [None]
